FAERS Safety Report 9494109 (Version 1)
Quarter: 2013Q3

REPORT INFORMATION
  Report Type: Spontaneous
  Country: GB (occurrence: None)
  Receive Date: 20130827
  Receipt Date: 20130827
  Transmission Date: 20140515
  Serious: Yes (Life-Threatening, Hospitalization)
  Sender: FDA-Public Use
  Company Number: GER/UKI/13/004045

PATIENT
  Age: 72 Year
  Sex: Female
  Weight: 76.2 kg

DRUGS (7)
  1. DONEPEZIL [Suspect]
     Indication: DEMENTIA ALZHEIMER^S TYPE
     Route: 048
     Dates: start: 20130124, end: 20130209
  2. CODEINE PHOSPHATE (CODEINE PHOSPHATE) [Concomitant]
  3. DOXAZOSIN (DOXAZOSIN MESILATE) [Concomitant]
  4. LEVOTHYROXINE (LEVOTHYROXINE) [Concomitant]
  5. PARACETAMOL (PARACETAMOL) [Concomitant]
  6. RAMIPRIL (RAMIPRIL) [Concomitant]
  7. SERETIDE (SERETIDE) [Concomitant]

REACTIONS (2)
  - Blood pressure decreased [None]
  - Loss of consciousness [None]
